FAERS Safety Report 9673198 (Version 3)
Quarter: 2014Q1

REPORT INFORMATION
  Report Type: Spontaneous
  Country: US (occurrence: US)
  Receive Date: 20131106
  Receipt Date: 20140226
  Transmission Date: 20141002
  Serious: No
  Sender: FDA-Public Use
  Company Number: US-AMGEN-USASP2013072941

PATIENT
  Age: 57 Year
  Sex: Male

DRUGS (1)
  1. ENBREL [Suspect]
     Indication: PSORIASIS
     Dosage: 50 MG, QWK
     Route: 065
     Dates: start: 20050701

REACTIONS (10)
  - Immune system disorder [Recovered/Resolved]
  - Discomfort [Not Recovered/Not Resolved]
  - Mental disorder [Not Recovered/Not Resolved]
  - Bowel movement irregularity [Not Recovered/Not Resolved]
  - Finger deformity [Not Recovered/Not Resolved]
  - Psoriasis [Not Recovered/Not Resolved]
  - Oral herpes [Recovered/Resolved]
  - Paraesthesia [Not Recovered/Not Resolved]
  - Sinusitis [Recovered/Resolved]
  - Onychomycosis [Not Recovered/Not Resolved]
